FAERS Safety Report 13548230 (Version 1)
Quarter: 2017Q2

REPORT INFORMATION
  Report Type: Spontaneous
  Country: US (occurrence: US)
  Receive Date: 20170516
  Receipt Date: 20170516
  Transmission Date: 20170830
  Serious: No
  Sender: FDA-Public Use
  Company Number: US-JNJFOC-20170304466

PATIENT
  Age: 7 Decade
  Sex: Female
  Weight: 70.31 kg

DRUGS (2)
  1. WOMENS ROGAINE [Suspect]
     Active Substance: MINOXIDIL
     Route: 061
  2. WOMENS ROGAINE [Suspect]
     Active Substance: MINOXIDIL
     Indication: ALOPECIA
     Route: 061

REACTIONS (5)
  - Product selection error [Recovered/Resolved]
  - Burning sensation [Recovered/Resolved]
  - Incorrect dose administered [Recovered/Resolved]
  - Accidental exposure to product [Recovered/Resolved]
  - Product quality issue [Unknown]
